FAERS Safety Report 17569212 (Version 2)
Quarter: 2021Q2

REPORT INFORMATION
  Report Type: Spontaneous
  Country: US (occurrence: US)
  Receive Date: 20200322
  Receipt Date: 20210611
  Transmission Date: 20210716
  Serious: Yes (Death, Hospitalization, Other)
  Sender: FDA-Public Use
  Company Number: US-TEVA-2020-US-1207931

PATIENT
  Age: 69 Year
  Sex: Male
  Weight: 76.27 kg

DRUGS (11)
  1. METFORMIN HCL [Concomitant]
     Active Substance: METFORMIN HYDROCHLORIDE
     Indication: DIABETES MELLITUS
     Route: 048
     Dates: start: 20100315, end: 20181231
  2. VALSARTAN W/HYDROCHLOROTHIAZIDE TEVA [Suspect]
     Active Substance: HYDROCHLOROTHIAZIDE\VALSARTAN
     Indication: HYPERTENSION
     Dosage: 80?12.5 MG
     Route: 065
     Dates: start: 20130510, end: 20140612
  3. VALSARTAN SANDOZ [Suspect]
     Active Substance: VALSARTAN
     Indication: HYPERTENSION
     Route: 065
     Dates: start: 20140812, end: 20150829
  4. IRON [Concomitant]
     Active Substance: IRON
     Dosage: 1 TAB ORALLY ONCE A DAY
     Route: 048
  5. VALSARTAN CAMBER [Suspect]
     Active Substance: VALSARTAN
     Indication: HYPERTENSION
     Route: 065
     Dates: start: 20150928, end: 20160525
  6. RANITIDINE. [Concomitant]
     Active Substance: RANITIDINE
     Route: 048
  7. GLIMEPIRIDE. [Concomitant]
     Active Substance: GLIMEPIRIDE
     Indication: DIABETES MELLITUS
     Dates: start: 20091102, end: 20120207
  8. ASPIRIN. [Concomitant]
     Active Substance: ASPIRIN
     Indication: ANTICOAGULANT THERAPY
     Dates: start: 20090101, end: 20190207
  9. HYDROCHLOROTHIAZIDE W/VALSARTAN SANDOZ [Suspect]
     Active Substance: HYDROCHLOROTHIAZIDE\VALSARTAN
     Indication: HYPERTENSION
     Dosage: 80?12.5 MG
     Route: 065
     Dates: start: 20121028, end: 20130330
  10. FISH OIL [Concomitant]
     Active Substance: FISH OIL
     Route: 048
  11. LANTUS [Concomitant]
     Active Substance: INSULIN GLARGINE
     Dosage: 100 UNITS/ML, 45 UNITS SUBCUTANEOUS ONCE A DAY
     Route: 058

REACTIONS (3)
  - Diarrhoea [Recovered/Resolved]
  - Hepatocellular carcinoma [Fatal]
  - Acute kidney injury [Recovered/Resolved]

NARRATIVE: CASE EVENT DATE: 20160615
